FAERS Safety Report 8171531-6 (Version None)
Quarter: 2012Q1

REPORT INFORMATION
  Report Type: 
  Country: None (occurrence: None)
  Receive Date: 20120228
  Receipt Date: 20120220
  Transmission Date: 20120608
  Serious: Yes (Hospitalization, Other)
  Sender: FDA-Public Use
  Company Number: CA-ABBOTT-08P-028-0486094-00

PATIENT
  Sex: Female
  Weight: 81.72 kg

DRUGS (13)
  1. WELLBUTRIN XL [Concomitant]
     Indication: PRODUCT USED FOR UNKNOWN INDICATION
  2. NEXIUM [Concomitant]
     Indication: PRODUCT USED FOR UNKNOWN INDICATION
  3. ELAVIL [Concomitant]
     Indication: PRODUCT USED FOR UNKNOWN INDICATION
  4. HUMIRA [Suspect]
     Route: 058
     Dates: start: 20090626, end: 20090709
  5. MS CONTIN [Concomitant]
     Route: 048
  6. YASMIN [Concomitant]
     Indication: PRODUCT USED FOR UNKNOWN INDICATION
     Route: 048
  7. EFFEXOR [Concomitant]
     Indication: PRODUCT USED FOR UNKNOWN INDICATION
  8. HUMIRA [Suspect]
     Indication: CROHN'S DISEASE
     Route: 058
     Dates: start: 20071019, end: 20080919
  9. IRON [Concomitant]
     Indication: PRODUCT USED FOR UNKNOWN INDICATION
  10. MS CONTIN [Concomitant]
     Indication: ABDOMINAL PAIN
  11. HUMIRA [Suspect]
     Dosage: LOADING DOSE
     Dates: start: 20120217
  12. APO-NITROFURANTOIN [Concomitant]
     Indication: CYSTITIS NONINFECTIVE
  13. MULTI-VITAMINS [Concomitant]
     Indication: PRODUCT USED FOR UNKNOWN INDICATION

REACTIONS (11)
  - ORAL CAVITY FISTULA [None]
  - ANAL ABSCESS [None]
  - RECTAL DISCHARGE [None]
  - INTESTINAL FISTULA [None]
  - VAGINAL FISTULA [None]
  - TOOTH EXTRACTION [None]
  - CLOSTRIDIUM DIFFICILE COLITIS [None]
  - SINUSITIS [None]
  - PNEUMONIA [None]
  - ANAL FISTULA [None]
  - TOOTH ABSCESS [None]
